FAERS Safety Report 5265281-3 (Version None)
Quarter: 2007Q1

REPORT INFORMATION
  Report Type: 
  Country: None (occurrence: None)
  Receive Date: 20061213
  Receipt Date: 20030916
  Transmission Date: 20070707
  Serious: No
  Sender: FDA-Public Use
  Company Number: 2003UW11861

PATIENT

DRUGS (1)
  1. IRESSA [Suspect]

REACTIONS (4)
  - DYSPNOEA [None]
  - LUNG DISORDER [None]
  - RASH [None]
  - STOMATITIS [None]
